FAERS Safety Report 21985147 (Version 4)
Quarter: 2023Q1

REPORT INFORMATION
  Report Type: Report from Study
  Country: US (occurrence: US)
  Receive Date: 20230213
  Receipt Date: 20230327
  Transmission Date: 20230417
  Serious: Yes (Hospitalization, Other)
  Sender: FDA-Public Use
  Company Number: US-GILEAD-2023-0613883

PATIENT
  Age: 63 Year
  Sex: Female

DRUGS (5)
  1. AMBRISENTAN [Suspect]
     Active Substance: AMBRISENTAN
     Indication: Pulmonary arterial hypertension
     Dosage: LETAIRIS 10MG ORALLY DAILY
     Route: 048
     Dates: start: 20190613
  2. AMBRISENTAN [Suspect]
     Active Substance: AMBRISENTAN
     Dosage: LETAIRIS 10MG ORALLY DAILY
     Route: 048
     Dates: start: 20190613
  3. AMBRISENTAN [Suspect]
     Active Substance: AMBRISENTAN
     Dosage: LETAIRIS 10MG ORALLY DAILY
     Route: 065
     Dates: start: 20190613
  4. PREDNISONE [Suspect]
     Active Substance: PREDNISONE
     Indication: Product used for unknown indication
     Route: 065
  5. TREPROSTINIL [Concomitant]
     Active Substance: TREPROSTINIL

REACTIONS (9)
  - Pneumonitis [Recovered/Resolved]
  - Myocarditis [Recovered/Resolved]
  - Pneumonia [Unknown]
  - Fluid retention [Recovered/Resolved]
  - Dyspnoea [Recovered/Resolved]
  - Heart rate abnormal [Unknown]
  - Back pain [Not Recovered/Not Resolved]
  - Peripheral swelling [Not Recovered/Not Resolved]
  - Mood swings [Not Recovered/Not Resolved]

NARRATIVE: CASE EVENT DATE: 20230117
